FAERS Safety Report 8078111-1 (Version None)
Quarter: 2012Q1

REPORT INFORMATION
  Report Type: 
  Country: None (occurrence: None)
  Receive Date: 20120127
  Receipt Date: 20110131
  Transmission Date: 20120608
  Serious: No
  Sender: FDA-Public Use
  Company Number: US-ABBOTT-10P-163-0688131-00

PATIENT
  Sex: Female

DRUGS (7)
  1. TENORMIN [Concomitant]
     Indication: PRODUCT USED FOR UNKNOWN INDICATION
  2. BENICAR [Concomitant]
     Indication: PRODUCT USED FOR UNKNOWN INDICATION
  3. TENEX [Concomitant]
     Indication: PRODUCT USED FOR UNKNOWN INDICATION
  4. RELAFEN [Concomitant]
     Indication: PRODUCT USED FOR UNKNOWN INDICATION
  5. LOPID [Concomitant]
     Indication: PRODUCT USED FOR UNKNOWN INDICATION
  6. ASPIRIN [Concomitant]
     Indication: PRODUCT USED FOR UNKNOWN INDICATION
  7. HUMIRA [Suspect]
     Indication: PSORIATIC ARTHROPATHY
     Dates: start: 20101129

REACTIONS (5)
  - CHEST DISCOMFORT [None]
  - PARAESTHESIA ORAL [None]
  - DRUG INEFFECTIVE [None]
  - PARAESTHESIA [None]
  - DIZZINESS [None]
